FAERS Safety Report 8881000 (Version 7)
Quarter: 2013Q1

REPORT INFORMATION
  Report Type: Spontaneous
  Country: US (occurrence: US)
  Receive Date: 20121101
  Receipt Date: 20130122
  Transmission Date: 20140127
  Serious: Yes (Other)
  Sender: FDA-Public Use
  Company Number: US-PFIZER INC-2012267974

PATIENT
  Age: 66 Year
  Sex: Female
  Weight: 52.15 kg

DRUGS (6)
  1. PREVACID [Suspect]
     Indication: GASTRITIS
     Dosage: 300 MG, DAILY
     Dates: start: 2005, end: 201210
  2. NEURONTIN [Suspect]
     Indication: CONVULSION
     Dosage: 300 MG, 3X/DAY
     Route: 048
  3. NEURONTIN [Suspect]
     Dosage: 300 MG, 2X/DAY
  4. NEURONTIN [Suspect]
     Dosage: 300 MG, DAILY
  5. KEPPRA [Suspect]
     Indication: CONVULSION
     Dosage: 750 MG, 2X/DAY
  6. URSODIOL [Concomitant]
     Indication: BILIARY CIRRHOSIS PRIMARY
     Dosage: 500 MG, 2X/DAY
     Dates: start: 1999

REACTIONS (7)
  - Drug ineffective [Unknown]
  - Convulsion [Unknown]
  - Blood test abnormal [Unknown]
  - Amnesia [Not Recovered/Not Resolved]
  - Confusional state [Not Recovered/Not Resolved]
  - Irritability [Not Recovered/Not Resolved]
  - Overdose [Unknown]
